FAERS Safety Report 9683907 (Version 1)
Quarter: 2013Q4

REPORT INFORMATION
  Report Type: Spontaneous
  Country: US (occurrence: US)
  Receive Date: 20131112
  Receipt Date: 20131112
  Transmission Date: 20140711
  Serious: No
  Sender: FDA-Public Use
  Company Number: US-MALLINCKRODT-T201304772

PATIENT
  Sex: Female

DRUGS (4)
  1. FENTANYL TRANSDERMAL SYSTEM [Suspect]
     Indication: LUMBAR SPINAL STENOSIS
     Dosage: 100 MCG/HR, Q 72 HOURS
     Route: 062
     Dates: start: 20131016
  2. OXYCONTIN [Concomitant]
     Route: 065
  3. HYDROMORPHONE [Concomitant]
     Route: 065
  4. FENTANYL [Concomitant]
     Indication: PAIN
     Dosage: UNK
     Route: 062
     Dates: end: 20131016

REACTIONS (1)
  - Drug effect delayed [Recovered/Resolved]
